FAERS Safety Report 9280134 (Version 1)
Quarter: 2013Q2

REPORT INFORMATION
  Report Type: Spontaneous
  Country: US (occurrence: None)
  Receive Date: 20130507
  Receipt Date: 20130507
  Transmission Date: 20140414
  Serious: Yes (Hospitalization, Disabling)
  Sender: FDA-Public Use
  Company Number: None

PATIENT
  Age: 38 Year
  Sex: Female

DRUGS (2)
  1. VANCOMYCIN [Suspect]
     Indication: STAPHYLOCOCCAL INFECTION
     Dates: start: 201108, end: 201110
  2. CUBICIN [Suspect]

REACTIONS (5)
  - Rash [None]
  - Myalgia [None]
  - Asthenia [None]
  - Dysstasia [None]
  - Dyspnoea exertional [None]
